FAERS Safety Report 4903565-6 (Version None)
Quarter: 2006Q1

REPORT INFORMATION
  Report Type: 
  Country: None (occurrence: None)
  Receive Date: 20060208
  Receipt Date: 20060127
  Transmission Date: 20060701
  Serious: Yes (Hospitalization)
  Sender: FDA-Public Use
  Company Number: FR-BRISTOL-MYERS SQUIBB COMPANY-13266804

PATIENT
  Age: 66 Year
  Sex: Male

DRUGS (3)
  1. CETUXIMAB [Suspect]
     Indication: NON-SMALL CELL LUNG CANCER
     Dosage: DELAYED. MOST RECEITNINFUSION 19-JAN-06 (3RD INFUSION).
     Route: 041
     Dates: start: 20051228
  2. CISPLATIN [Suspect]
     Indication: NON-SMALL CELL LUNG CANCER
     Dosage: MOST RECENT INFUSION 19-JAN-06 (2ND INFUSION).
     Route: 042
     Dates: start: 20051228
  3. VINORELBINE [Suspect]
     Indication: NON-SMALL CELL LUNG CANCER
     Dosage: DELAYED.  MOST RECENT INFUSION 19-JAN-06 (3RD INFUSION).
     Route: 042
     Dates: start: 20051228

REACTIONS (1)
  - GENERAL PHYSICAL HEALTH DETERIORATION [None]
